FAERS Safety Report 4514319-7 (Version None)
Quarter: 2004Q4

REPORT INFORMATION
  Report Type: 
  Country: None (occurrence: None)
  Receive Date: 20041124
  Receipt Date: 20041104
  Transmission Date: 20050328
  Serious: Yes (Hospitalization, Other)
  Sender: FDA-Public Use
  Company Number: US_021290786

PATIENT
  Age: 50 Year
  Sex: Male
  Weight: 57 kg

DRUGS (11)
  1. VANCOMYCIN [Suspect]
     Indication: STAPHYLOCOCCAL INFECTION
     Dosage: 500 MG DAY
     Dates: start: 20010921, end: 20011009
  2. VANCOMYCIN [Suspect]
     Indication: ENTERITIS INFECTIOUS
     Dates: end: 20011010
  3. ZYLORIC (ALLOPURINOL) [Concomitant]
  4. TICLOPIDINE HCL [Concomitant]
  5. TEMOCAPRIL HYDROCHLORIDE [Concomitant]
  6. CALCIUM CARBONATE [Concomitant]
  7. CALCIUM POLYSTYRENE SULFONATE [Concomitant]
  8. SPHERICAL CARBONACEOUS ABSORBENT [Concomitant]
  9. TOSUFLOXACIN TOSILATE [Concomitant]
  10. LEVOFLOXACIN [Concomitant]
  11. CEFTAZIDIME [Concomitant]

REACTIONS (12)
  - ALANINE AMINOTRANSFERASE INCREASED [None]
  - ASPARTATE AMINOTRANSFERASE INCREASED [None]
  - DRUG ERUPTION [None]
  - DRUG HYPERSENSITIVITY [None]
  - EOSINOPHIL COUNT INCREASED [None]
  - HAEMODIALYSIS [None]
  - HEPATIC FUNCTION ABNORMAL [None]
  - LYMPHOCYTE STIMULATION TEST POSITIVE [None]
  - NEUTROPENIA [None]
  - RASH PAPULAR [None]
  - SKIN INFECTION [None]
  - WHITE BLOOD CELL COUNT DECREASED [None]
